FAERS Safety Report 25900306 (Version 1)
Quarter: 2025Q4

REPORT INFORMATION
  Report Type: Report from Study
  Country: US (occurrence: US)
  Receive Date: 20251009
  Receipt Date: 20251009
  Transmission Date: 20260118
  Serious: Yes (Other)
  Sender: ABBVIE
  Company Number: US-ABBVIE-6490875

PATIENT
  Age: 64 Year
  Sex: Male

DRUGS (3)
  1. BYSTOLIC [Suspect]
     Active Substance: NEBIVOLOL HYDROCHLORIDE
     Indication: Product used for unknown indication
     Route: 065
  2. BYSTOLIC [Suspect]
     Active Substance: NEBIVOLOL HYDROCHLORIDE
     Indication: Product used for unknown indication
     Route: 065
  3. CABOMETYX [Suspect]
     Active Substance: CABOZANTINIB S-MALATE
     Indication: Renal cancer
     Route: 048

REACTIONS (10)
  - Loss of consciousness [Unknown]
  - Blood pressure decreased [Recovering/Resolving]
  - Fatigue [Unknown]
  - Glossodynia [Unknown]
  - Glossitis [Unknown]
  - Tongue discomfort [Unknown]
  - Skin exfoliation [Unknown]
  - Dizziness [Not Recovered/Not Resolved]
  - Oral discomfort [Unknown]
  - Tongue ulceration [Unknown]

NARRATIVE: CASE EVENT DATE: 20250801
